FAERS Safety Report 14038572 (Version 1)
Quarter: 2017Q4

REPORT INFORMATION
  Report Type: Spontaneous
  Country: DE (occurrence: DE)
  Receive Date: 20171004
  Receipt Date: 20171004
  Transmission Date: 20180321
  Serious: Yes (Other)
  Sender: FDA-Public Use
  Company Number: DE-BAYER-2017-183324

PATIENT
  Sex: Female

DRUGS (1)
  1. MIRENA [Suspect]
     Active Substance: LEVONORGESTREL
     Dosage: UNK
     Route: 015
     Dates: start: 2004, end: 2016

REACTIONS (11)
  - Headache [None]
  - Autoimmune thyroiditis [None]
  - Breast cyst [None]
  - Fluid retention [None]
  - Autonomic nervous system imbalance [None]
  - Loss of libido [None]
  - Alopecia [None]
  - Anxiety disorder [None]
  - Hyperhidrosis [None]
  - Vitamin D decreased [None]
  - Device use issue [None]

NARRATIVE: CASE EVENT DATE: 2004
